FAERS Safety Report 12141073 (Version 3)
Quarter: 2018Q1

REPORT INFORMATION
  Report Type: Spontaneous
  Country: CA (occurrence: CA)
  Receive Date: 20160303
  Receipt Date: 20180119
  Transmission Date: 20180508
  Serious: Yes (Disabling, Other)
  Sender: FDA-Public Use
  Company Number: CA-SA-2016SA036294

PATIENT
  Age: 68 Year
  Sex: Male

DRUGS (1)
  1. AVALIDE [Suspect]
     Active Substance: HYDROCHLOROTHIAZIDE\IRBESARTAN
     Indication: HYPERTENSION
     Route: 048

REACTIONS (3)
  - Impaired work ability [Recovered/Resolved]
  - Pain [Recovered/Resolved]
  - Oedema peripheral [Recovered/Resolved]
